FAERS Safety Report 5593532-4 (Version None)
Quarter: 2008Q1

REPORT INFORMATION
  Report Type: 
  Country: None (occurrence: None)
  Receive Date: 20080116
  Receipt Date: 20080104
  Transmission Date: 20080703
  Serious: Yes (Hospitalization)
  Sender: FDA-Public Use
  Company Number: FR-ROCHE-539803

PATIENT
  Age: 82 Year
  Sex: Female

DRUGS (7)
  1. RIVOTRIL [Suspect]
     Route: 048
     Dates: start: 20061113, end: 20061126
  2. RIVOTRIL [Suspect]
     Route: 048
     Dates: start: 20070131
  3. LYRICA [Suspect]
     Dosage: STRENGTH 75 MG
     Route: 048
     Dates: start: 20061113, end: 20061126
  4. LYRICA [Suspect]
     Route: 048
     Dates: start: 20070117
  5. LYRICA [Suspect]
     Route: 048
     Dates: start: 20070120, end: 20070126
  6. COLCHICINE [Suspect]
     Route: 048
     Dates: start: 20070115
  7. ISOPTIN [Suspect]
     Indication: HYPERTENSION
     Dosage: DRUG: ISOPTINE LP
     Route: 048
     Dates: start: 20070207

REACTIONS (2)
  - CONFUSIONAL STATE [None]
  - CYTOLYTIC HEPATITIS [None]
